FAERS Safety Report 5178871-3 (Version None)
Quarter: 2006Q4

REPORT INFORMATION
  Report Type: 
  Country: None (occurrence: None)
  Receive Date: 20061208
  Receipt Date: 20061129
  Transmission Date: 20070319
  Serious: Yes (Hospitalization)
  Sender: FDA-Public Use
  Company Number: 232380

PATIENT
  Age: 29 Year
  Sex: Female

DRUGS (10)
  1. OMALIZUMAB [Suspect]
     Indication: ASTHMA
     Dates: end: 20061020
  2. ASMANEX TWISTHALER [Concomitant]
  3. FORADIL [Concomitant]
  4. SINGULAIR [Concomitant]
  5. THEOPHYLLINE [Concomitant]
  6. ZYRTEC [Concomitant]
  7. QVAR 40 [Concomitant]
  8. XOPENEX [Concomitant]
  9. PRENATAL VITAMINS (MINERALS NOS, MULTIVITAMINS NOS) [Concomitant]
  10. PROTONIX [Concomitant]

REACTIONS (4)
  - CAESAREAN SECTION [None]
  - DRUG EXPOSURE DURING PREGNANCY [None]
  - FOETAL DISTRESS SYNDROME [None]
  - PREGNANCY [None]
